FAERS Safety Report 5879858-5 (Version None)
Quarter: 2008Q3

REPORT INFORMATION
  Report Type: 
  Country: None (occurrence: None)
  Receive Date: 20080912
  Receipt Date: 20080905
  Transmission Date: 20090109
  Serious: Yes (Hospitalization, Other)
  Sender: FDA-Public Use
  Company Number: US-ROCHE-584950

PATIENT
  Age: 22 Year
  Sex: Male

DRUGS (38)
  1. INVIRASE [Suspect]
     Route: 065
     Dates: start: 19960418, end: 19961024
  2. NELFINAVIR [Suspect]
     Route: 065
     Dates: start: 19970619, end: 19971117
  3. NELFINAVIR [Suspect]
     Route: 065
     Dates: start: 19981012, end: 19990623
  4. ENFUVIRTIDE [Suspect]
     Route: 065
     Dates: start: 20011105, end: 20030424
  5. ENFUVIRTIDE [Suspect]
     Route: 065
     Dates: start: 20050906, end: 20050925
  6. ZIDOVUDINE [Suspect]
     Route: 065
     Dates: start: 19941110, end: 19961024
  7. ZIDOVUDINE [Suspect]
     Route: 065
     Dates: start: 20030331, end: 20050906
  8. LAMIVUDINE [Suspect]
     Route: 065
     Dates: start: 19960926, end: 19970619
  9. LAMIVUDINE [Suspect]
     Route: 065
     Dates: start: 19971117, end: 19990623
  10. LAMIVUDINE [Suspect]
     Route: 065
     Dates: start: 20001129, end: 20020531
  11. LAMIVUDINE [Suspect]
     Route: 065
     Dates: start: 20030331
  12. STAVUDINE [Suspect]
     Route: 065
     Dates: start: 19961024, end: 19970619
  13. STAVUDINE [Suspect]
     Route: 065
     Dates: start: 19971117, end: 20011105
  14. RITONAVIR [Suspect]
     Route: 065
     Dates: start: 19961024, end: 19970619
  15. LOPINAVIR [Suspect]
     Dosage: REPORTED: RITANAVIR-BOOSTED LOPINAVIR
     Route: 065
     Dates: start: 20000703, end: 20011105
  16. LOPINAVIR [Suspect]
     Dosage: REPORTED: RITANAVIR-BOOSTED LOPINAVIR (SELF-DISCONTINUED)
     Route: 065
     Dates: start: 20020531, end: 20030331
  17. INDINIVIR SULFATE [Suspect]
     Route: 065
     Dates: start: 19970619, end: 19971117
  18. NEVIRAPINE [Suspect]
     Dosage: DISCONTINUED
     Route: 065
     Dates: start: 19971117, end: 19971201
  19. DIDANOSINE [Suspect]
     Route: 065
     Dates: start: 19990824, end: 20000703
  20. DIDANOSINE [Suspect]
     Route: 065
     Dates: start: 20011105, end: 20030331
  21. DELAVIRDINE [Suspect]
     Route: 065
     Dates: start: 19990824, end: 20000621
  22. HYDROXYUREA [Suspect]
     Dosage: DISCONTINUED
     Route: 065
     Dates: start: 19990824, end: 20000518
  23. AMPRENAVIR [Suspect]
     Route: 065
     Dates: start: 20000703, end: 20011105
  24. AMPRENAVIR [Suspect]
     Dosage: REPORTED: RITONAVIR-BOOSTED AMPRENAVIR
     Route: 065
     Dates: start: 20050906, end: 20060620
  25. EFAVIRENZ [Suspect]
     Route: 065
     Dates: start: 20011105, end: 20041006
  26. TENOFOVIR [Suspect]
     Dosage: REPORTED: TENOFOVIR DF
     Route: 065
     Dates: start: 20020531, end: 20040708
  27. TENOFOVIR [Suspect]
     Route: 065
     Dates: start: 20041006
  28. ATAZANAVIR [Suspect]
     Dosage: REPORTED: RITONAVIR-BOOSTED ATAZANAVIR
     Route: 065
     Dates: start: 20041006, end: 20050906
  29. DARUNAVIR [Suspect]
     Dosage: REPORTED: RITONAVIR-BOOSTED DARUNAVIR. STOPPED
     Route: 065
     Dates: start: 20060620, end: 20070909
  30. FOSAMPRENAVIR [Suspect]
     Dosage: REPORTED: RITONAVIR-BOOSTED FOSAMPRENAVIR
     Route: 065
     Dates: start: 20071009
  31. SULFAMETHOXAZOLE AND TRIMETHOPRIM [Concomitant]
     Dosage: REPORTED: TMP/SMX
  32. GEMFIBROZIL [Concomitant]
  33. PANCRELIPASE [Concomitant]
     Dosage: TAKEN WITH MEALS
  34. RANITIDINE [Concomitant]
     Dosage: TAKEN DAILY
  35. CALCIUM CARBONATE [Concomitant]
  36. VITAMINE D [Concomitant]
     Dosage: TAKEN DAILY
  37. AZITHROMYCIN [Concomitant]
     Dosage: TAKEN WEEKLY
  38. POSACONAZOLE [Concomitant]
     Dosage: TAKEN DAILY

REACTIONS (6)
  - CACHEXIA [None]
  - CEREBROVASCULAR DISORDER [None]
  - DEPRESSION [None]
  - HEADACHE [None]
  - PANCREATITIS CHRONIC [None]
  - PNEUMOCYSTIS JIROVECI PNEUMONIA [None]
